FAERS Safety Report 9781215 (Version 1)
Quarter: 2013Q4

REPORT INFORMATION
  Report Type: Spontaneous
  Country: US (occurrence: US)
  Receive Date: 20131224
  Receipt Date: 20131224
  Transmission Date: 20140711
  Serious: No
  Sender: FDA-Public Use
  Company Number: US-009507513-1312USA010879

PATIENT
  Sex: Female

DRUGS (5)
  1. COSOPT [Suspect]
     Indication: GLAUCOMA
     Dosage: 1 DROP INTO BOTH EYES TWICE DAILY
     Route: 047
  2. HYZAAR [Suspect]
     Route: 048
  3. HYDROCHLOROTHIAZIDE (+) VALSARTAN [Suspect]
  4. CORTEF [Suspect]
  5. LEVOTHYROXINE SODIUM [Suspect]

REACTIONS (5)
  - Visual impairment [Recovered/Resolved]
  - Visual impairment [Recovered/Resolved]
  - Blood pressure inadequately controlled [Unknown]
  - Blood pressure increased [Unknown]
  - Alopecia [Unknown]
